FAERS Safety Report 7593369-0 (Version None)
Quarter: 2011Q3

REPORT INFORMATION
  Report Type: 
  Country: None (occurrence: None)
  Receive Date: 20110706
  Receipt Date: 20110705
  Transmission Date: 20111222
  Serious: Yes (Other)
  Sender: FDA-Public Use
  Company Number: US-PFIZER INC-2011149897

PATIENT
  Sex: Male
  Weight: 102 kg

DRUGS (3)
  1. CHANTIX [Suspect]
     Indication: SMOKING CESSATION THERAPY
     Dosage: SPLIT 1MG IN HALF, DAILY
     Route: 048
     Dates: start: 20110625, end: 20110601
  2. CHANTIX [Suspect]
     Dosage: 1 MG, 2X/DAY
     Dates: start: 20110101
  3. CHANTIX [Suspect]
     Dosage: 1MG HALF TABLET 2X/DAY
     Dates: start: 20110628, end: 20110101

REACTIONS (4)
  - INSOMNIA [None]
  - ANXIETY [None]
  - AGITATION [None]
  - BLISTER [None]
